FAERS Safety Report 4900553-0 (Version None)
Quarter: 2006Q1

REPORT INFORMATION
  Report Type: 
  Country: None (occurrence: None)
  Receive Date: 20060127
  Receipt Date: 20051111
  Transmission Date: 20060701
  Serious: Yes (Other)
  Sender: FDA-Public Use
  Company Number: CLOF-10144

PATIENT
  Age: 66 Year
  Sex: Female

DRUGS (10)
  1. CLOFARABINE [Suspect]
     Indication: ACUTE MYELOID LEUKAEMIA
     Dosage: 51 MG/M2 QD X 5 IV
     Route: 042
     Dates: start: 20050708, end: 20050712
  2. CYTARABINE [Suspect]
     Indication: ACUTE MYELOID LEUKAEMIA
     Dosage: 34 MG/M2 SC
     Route: 058
     Dates: start: 20050708, end: 20050721
  3. COZAAR [Concomitant]
  4. CARDIZEM [Concomitant]
  5. LASIX [Concomitant]
  6. ZYRTEC [Concomitant]
  7. PRILOSEC [Concomitant]
  8. MSIR [Concomitant]
  9. MS CONTIN [Concomitant]
  10. CYMBALTA [Concomitant]

REACTIONS (2)
  - NEUTROPHIL COUNT DECREASED [None]
  - PLATELET COUNT DECREASED [None]
